FAERS Safety Report 7078215-6 (Version None)
Quarter: 2010Q4

REPORT INFORMATION
  Report Type: 
  Country: None (occurrence: None)
  Receive Date: 20101101
  Receipt Date: 20101101
  Transmission Date: 20110411
  Serious: Yes (Hospitalization)
  Sender: FDA-Public Use
  Company Number: None

PATIENT
  Age: 72 Year

DRUGS (1)
  1. TRAZODONE HCL [Suspect]
     Dosage: 300 MG DAILY

REACTIONS (5)
  - ABASIA [None]
  - DIZZINESS [None]
  - EAR PAIN [None]
  - FALL [None]
  - FEELING ABNORMAL [None]
